FAERS Safety Report 6644365-9 (Version None)
Quarter: 2010Q1

REPORT INFORMATION
  Report Type: 
  Country: None (occurrence: None)
  Receive Date: 20100322
  Receipt Date: 20100314
  Transmission Date: 20100710
  Serious: Yes (Hospitalization)
  Sender: FDA-Public Use
  Company Number: EG-ROCHE-688017

PATIENT
  Sex: Male
  Weight: 85 kg

DRUGS (1)
  1. TOCILIZUMAB [Suspect]
     Indication: RHEUMATOID ARTHRITIS
     Dosage: FORM:INFUSION; DOSE: 8 MG/KG; LAST DOSE PRIOR TO SAE: 1 MAR 2010
     Route: 042
     Dates: start: 20100210, end: 20100301

REACTIONS (1)
  - GANGRENE [None]
